FAERS Safety Report 24574028 (Version 1)
Quarter: 2024Q4

REPORT INFORMATION
  Report Type: Spontaneous
  Country: GB (occurrence: GB)
  Receive Date: 20241104
  Receipt Date: 20241104
  Transmission Date: 20250115
  Serious: Yes (Hospitalization, Other)
  Sender: TEVA
  Company Number: GB-MYLANLABS-2024M1094857

PATIENT
  Sex: Female

DRUGS (9)
  1. PHENYTOIN [Suspect]
     Active Substance: PHENYTOIN
     Indication: Product used for unknown indication
     Dosage: DAILY DOSE: 200MG
     Route: 065
  2. PHENYTOIN [Suspect]
     Active Substance: PHENYTOIN
     Indication: Product used for unknown indication
     Dosage: 200 MG IN THE MORNING AND 125 MG AT NIGHT
     Route: 065
  3. OMEPRAZOLE [Concomitant]
     Active Substance: OMEPRAZOLE
     Dosage: PM (EVERY NIGHT); DAILY DOSE: 1 DOSAGE FORM
  4. CALCIUM CARBONATE\CHOLECALCIFEROL [Concomitant]
     Active Substance: CALCIUM CARBONATE\CHOLECALCIFEROL
     Dosage: AM (EVERY MORNING); DAILY DOSE: 1 DOSAGE FORM
  5. VALPROATE SODIUM [Concomitant]
     Active Substance: VALPROATE SODIUM
     Indication: Mood swings
     Dosage: DAILY DOSE: 1000 MG
  6. MIRTAZAPINE [Concomitant]
     Active Substance: MIRTAZAPINE
     Dosage: PM (EVERY NIGHT); DAILY DOSE: 1 DOSAGE FORM
  7. ARIPIPRAZOLE [Concomitant]
     Active Substance: ARIPIPRAZOLE
     Route: 030
  8. ATORVASTATIN [Concomitant]
     Active Substance: ATORVASTATIN
     Dosage: (EVERY MORNING) DAILY DOSE: 1 DOSAGE FORM
  9. ARIPIPRAZOLE [Concomitant]
     Active Substance: ARIPIPRAZOLE
     Dosage: AM (EVERY MORNING); DAILY DOSE: 1 DOSAGE FORM

REACTIONS (3)
  - Illness [Unknown]
  - Product dose omission issue [Unknown]
  - Seizure [Unknown]
